FAERS Safety Report 4279282-5 (Version None)
Quarter: 2004Q1

REPORT INFORMATION
  Report Type: 
  Country: None (occurrence: None)
  Receive Date: 20040127
  Receipt Date: 20040120
  Transmission Date: 20041129
  Serious: Yes (Life-Threatening)
  Sender: FDA-Public Use
  Company Number: DK-BRISTOL-MYERS SQUIBB COMPANY-12481271

PATIENT
  Age: 56 Year
  Sex: Female

DRUGS (15)
  1. TAXOL [Suspect]
     Indication: OVARIAN CANCER
     Route: 042
     Dates: start: 20040113, end: 20040113
  2. CARBOPLATIN [Concomitant]
     Indication: OVARIAN CANCER
     Route: 042
     Dates: start: 20040113, end: 20040113
  3. METOCLOPRAMIDE [Concomitant]
  4. ZOFRAN [Concomitant]
  5. ODRIK [Concomitant]
  6. GLYBURIDE [Concomitant]
  7. ASPIRIN [Concomitant]
  8. CENTYL [Concomitant]
  9. ANTABUSE [Concomitant]
  10. MAGNESIUM OXIDE [Concomitant]
  11. SODIUM PICOSULFATE [Concomitant]
  12. NEXIUM [Concomitant]
  13. THIAMIN [Concomitant]
  14. VITAMIN B COMPLEX CAP [Concomitant]
  15. PREDNISOLONE [Concomitant]

REACTIONS (3)
  - CARDIAC ARREST [None]
  - VENTRICULAR FIBRILLATION [None]
  - VENTRICULAR TACHYCARDIA [None]
